FAERS Safety Report 4672523-1 (Version None)
Quarter: 2005Q2

REPORT INFORMATION
  Report Type: 
  Country: None (occurrence: None)
  Receive Date: 20050524
  Receipt Date: 20050322
  Transmission Date: 20051028
  Serious: Yes (Hospitalization, Other)
  Sender: FDA-Public Use
  Company Number: IT-BRISTOL-MYERS SQUIBB COMPANY-12907358

PATIENT
  Age: 56 Year
  Sex: Female
  Weight: 75 kg

DRUGS (6)
  1. PARAPLATIN [Suspect]
     Indication: OVARIAN CANCER
     Dosage: CYCLE 1: 01-DEC-2004, CYCLE ?: JAN-2005, CYCLE 4: 21-FEB-2005
     Route: 042
     Dates: start: 20041201, end: 20050221
  2. CAELYX [Suspect]
     Indication: OVARIAN CANCER
     Dosage: CYCLE 1: 01-DEC-2004, CYCLE ?: JAN-2005, CYCLE 4: 21-FEB-2005
     Route: 042
     Dates: start: 20041201, end: 20050221
  3. FILGRASTIM [Concomitant]
     Indication: NEUTROPENIA
     Dates: start: 20050130, end: 20050203
  4. FUROSEMIDE [Concomitant]
     Indication: ASCITES
     Route: 048
     Dates: start: 20041125
  5. SPIRONOLACTONE [Concomitant]
     Indication: ASCITES
     Route: 048
     Dates: start: 20041125
  6. RANITIDINE [Concomitant]
     Indication: PROPHYLAXIS
     Route: 048
     Dates: start: 20041125

REACTIONS (7)
  - ANAEMIA [None]
  - ASCITES [None]
  - EPISTAXIS [None]
  - LEUKOPENIA [None]
  - NEUTROPENIA [None]
  - PETECHIAE [None]
  - THROMBOCYTOPENIA [None]
